FAERS Safety Report 17433887 (Version 2)
Quarter: 2020Q1

REPORT INFORMATION
  Report Type: Spontaneous
  Country: PL (occurrence: PL)
  Receive Date: 20200219
  Receipt Date: 20200305
  Transmission Date: 20200409
  Serious: Yes (Life-Threatening, Hospitalization, Other)
  Sender: FDA-Public Use
  Company Number: PL-ACCORD-173071

PATIENT
  Age: 66 Year
  Sex: Female

DRUGS (2)
  1. MYCOPHENOLIC ACID. [Suspect]
     Active Substance: MYCOPHENOLIC ACID
     Indication: IMMUNOSUPPRESSANT DRUG THERAPY
     Dates: start: 201505
  2. TACROLIMUS. [Suspect]
     Active Substance: TACROLIMUS
     Indication: IMMUNOSUPPRESSANT DRUG THERAPY
     Dates: start: 201505

REACTIONS (3)
  - Basal cell carcinoma [Recovered/Resolved]
  - Keratoacanthoma [Recovered/Resolved]
  - Squamous cell carcinoma [Recovered/Resolved]

NARRATIVE: CASE EVENT DATE: 201605
